FAERS Safety Report 5293819-9 (Version None)
Quarter: 2007Q2

REPORT INFORMATION
  Report Type: 
  Country: None (occurrence: None)
  Receive Date: 20070411
  Receipt Date: 20070330
  Transmission Date: 20071010
  Serious: Yes (Hospitalization, Other)
  Sender: FDA-Public Use
  Company Number: BR-PFIZER INC-2006147129

PATIENT
  Sex: Female
  Weight: 57 kg

DRUGS (7)
  1. SU-011,248 [Suspect]
     Indication: METASTATIC RENAL CELL CARCINOMA
     Route: 048
     Dates: start: 20060522, end: 20061126
  2. GABAPENTIN [Concomitant]
     Route: 048
  3. MORPHINE [Concomitant]
     Route: 048
     Dates: start: 20060915, end: 20061126
  4. BROMAZEPAM [Concomitant]
     Route: 048
     Dates: start: 20051201, end: 20061126
  5. OMEPRAZOLE [Concomitant]
     Route: 048
     Dates: start: 20060808
  6. BROMOPRIDE [Concomitant]
     Route: 048
     Dates: start: 20060929, end: 20061126
  7. LEVOTHYROXINE SODIUM [Concomitant]
     Route: 048
     Dates: start: 20020101

REACTIONS (5)
  - ASTHENIA [None]
  - CONVULSION [None]
  - LEUKOENCEPHALOPATHY [None]
  - REVERSIBLE POSTERIOR LEUKOENCEPHALOPATHY SYNDROME [None]
  - SOMNOLENCE [None]
